FAERS Safety Report 23361562 (Version 3)
Quarter: 2024Q2

REPORT INFORMATION
  Report Type: Spontaneous
  Country: US (occurrence: US)
  Receive Date: 20240103
  Receipt Date: 20240524
  Transmission Date: 20240716
  Serious: Yes (Other)
  Sender: FDA-Public Use
  Company Number: US-BAYER-2024A000734

PATIENT
  Age: 19 Year
  Sex: Female
  Weight: 52.154 kg

DRUGS (1)
  1. SKYLA [Suspect]
     Active Substance: LEVONORGESTREL
     Indication: Contraception
     Dosage: 14?G/DAY
     Route: 015
     Dates: start: 202303, end: 20231130

REACTIONS (4)
  - Pregnancy with contraceptive device [None]
  - Foetal growth restriction [None]
  - Device dislocation [Recovered/Resolved]
  - Drug ineffective [None]

NARRATIVE: CASE EVENT DATE: 20231120
